FAERS Safety Report 4314484-0 (Version None)
Quarter: 2004Q1

REPORT INFORMATION
  Report Type: 
  Country: None (occurrence: None)
  Receive Date: 20040309
  Receipt Date: 20031104
  Transmission Date: 20041129
  Serious: No
  Sender: FDA-Public Use
  Company Number: PHRM2003FR02953

PATIENT
  Age: 33 Year
  Sex: Female

DRUGS (2)
  1. NISIS [Suspect]
     Indication: HYPERTENSION
     Dosage: 1 DF, QD
     Route: 048
     Dates: start: 20030101
  2. LODOZ [Concomitant]
     Indication: HYPERTENSION
     Route: 048

REACTIONS (3)
  - ANGIONEUROTIC OEDEMA [None]
  - FACE OEDEMA [None]
  - URTICARIA GENERALISED [None]
